FAERS Safety Report 13737617 (Version 1)
Quarter: 2017Q3

REPORT INFORMATION
  Report Type: Spontaneous
  Country: US (occurrence: US)
  Receive Date: 20170710
  Receipt Date: 20170710
  Transmission Date: 20171127
  Serious: Yes (Other)
  Sender: FDA-Public Use
  Company Number: US-SAOL THERAPEUTICS-2016SAO00689

PATIENT
  Age: 8 Year
  Sex: Male

DRUGS (2)
  1. BACLOFEN. [Suspect]
     Active Substance: BACLOFEN
     Indication: MUSCLE SPASTICITY
     Route: 037
  2. LIORESAL [Suspect]
     Active Substance: BACLOFEN

REACTIONS (6)
  - Complication associated with device [Recovered/Resolved]
  - Drug withdrawal syndrome [Unknown]
  - Implant site swelling [Unknown]
  - Constipation [Unknown]
  - Device dislocation [Unknown]
  - Therapy non-responder [Not Recovered/Not Resolved]

NARRATIVE: CASE EVENT DATE: 2016
